FAERS Safety Report 6184120-X (Version None)
Quarter: 2009Q2

REPORT INFORMATION
  Report Type: 
  Country: None (occurrence: None)
  Receive Date: 20090508
  Receipt Date: 20090430
  Transmission Date: 20091009
  Serious: Yes (Hospitalization, Other)
  Sender: FDA-Public Use
  Company Number: PHHY2009CH16347

PATIENT
  Age: 64 Year
  Sex: Male

DRUGS (8)
  1. VOLTAREN [Suspect]
     Indication: NEURALGIA
     Dosage: 150 MG/DAY
     Dates: start: 20090210, end: 20090220
  2. INSULIN [Concomitant]
     Dosage: UNK
  3. AMARYL [Concomitant]
     Dosage: UNK
  4. GLUCOPHAGE [Concomitant]
     Dosage: UNK
     Dates: end: 20090310
  5. CARDAXEN [Concomitant]
     Dosage: UNK
  6. LANSOPRAZOLE [Concomitant]
     Dosage: UNK
  7. SORTIS [Concomitant]
     Dosage: UNK
  8. ZYLORIC [Concomitant]
     Dosage: UNK
     Dates: end: 20090310

REACTIONS (13)
  - ABDOMINAL PAIN [None]
  - BLOOD CREATININE INCREASED [None]
  - BLOOD UREA INCREASED [None]
  - DYSPNOEA EXERTIONAL [None]
  - GENERAL PHYSICAL HEALTH DETERIORATION [None]
  - HYPERKALAEMIA [None]
  - NOCTURIA [None]
  - OEDEMA PERIPHERAL [None]
  - PROSTATIC CALCIFICATION [None]
  - RENAL FAILURE ACUTE [None]
  - RENAL IMPAIRMENT [None]
  - URINARY RETENTION [None]
  - URINARY TRACT INFECTION [None]
